FAERS Safety Report 13668853 (Version 2)
Quarter: 2017Q3

REPORT INFORMATION
  Report Type: Spontaneous
  Country: FR (occurrence: FR)
  Receive Date: 20170620
  Receipt Date: 20170717
  Transmission Date: 20171127
  Serious: Yes (Death, Hospitalization, Other)
  Sender: FDA-Public Use
  Company Number: FR-ELI_LILLY_AND_COMPANY-FR201706005404

PATIENT
  Age: 73 Year
  Sex: Male

DRUGS (1)
  1. ALIMTA [Suspect]
     Active Substance: PEMETREXED DISODIUM
     Indication: LUNG CANCER METASTATIC
     Dosage: 800 MG, CYCLICAL
     Route: 042
     Dates: start: 20170424, end: 20170522

REACTIONS (8)
  - Systemic inflammatory response syndrome [Fatal]
  - Vomiting [Unknown]
  - Cardiac arrest [Fatal]
  - Decreased appetite [Unknown]
  - Nausea [Unknown]
  - Diarrhoea [Fatal]
  - Mucosal inflammation [Unknown]
  - Pancytopenia [Fatal]

NARRATIVE: CASE EVENT DATE: 20170522
